FAERS Safety Report 13538858 (Version 1)
Quarter: 2017Q2

REPORT INFORMATION
  Report Type: Spontaneous
  Country: US (occurrence: US)
  Receive Date: 20170512
  Receipt Date: 20170512
  Transmission Date: 20170830
  Serious: No
  Sender: FDA-Public Use
  Company Number: US-JNJFOC-20170331275

PATIENT
  Sex: Female
  Weight: 63.5 kg

DRUGS (3)
  1. LITHIUM. [Concomitant]
     Active Substance: LITHIUM
     Route: 065
  2. PALIPERIDONE. [Suspect]
     Active Substance: PALIPERIDONE
     Indication: PRODUCT USED FOR UNKNOWN INDICATION
     Route: 048
     Dates: start: 2016, end: 2016
  3. TROSPIUM [Concomitant]
     Active Substance: TROSPIUM
     Route: 065

REACTIONS (3)
  - Insomnia [Recovered/Resolved]
  - Eating disorder [Recovered/Resolved]
  - Hallucination [Recovered/Resolved]

NARRATIVE: CASE EVENT DATE: 2016
